FAERS Safety Report 8365424-9 (Version None)
Quarter: 2012Q2

REPORT INFORMATION
  Report Type: 
  Country: None (occurrence: None)
  Receive Date: 20120516
  Receipt Date: 20120502
  Transmission Date: 20120825
  Serious: Yes (Other)
  Sender: FDA-Public Use
  Company Number: PT-ROCHE-1066761

PATIENT
  Age: 42 Year
  Sex: Male
  Weight: 80 kg

DRUGS (5)
  1. ACTEMRA [Suspect]
     Indication: RHEUMATOID ARTHRITIS
     Dates: start: 20111201
  2. PREDNISOLONE [Concomitant]
     Dates: start: 20111101
  3. PREDNISOLONE [Concomitant]
     Indication: RHEUMATOID ARTHRITIS
     Dates: start: 20110501
  4. PREDNISOLONE [Concomitant]
     Dosage: DOSAGE REDUCED
     Dates: start: 20120101
  5. PREDNISOLONE [Concomitant]
     Dosage: DOSAGE REDUCED
     Dates: start: 20120401

REACTIONS (4)
  - HYPERTENSION [None]
  - HYPERCHOLESTEROLAEMIA [None]
  - ANTIPHOSPHOLIPID SYNDROME [None]
  - RHEUMATOID NODULE [None]
